FAERS Safety Report 6521973-7 (Version None)
Quarter: 2009Q4

REPORT INFORMATION
  Report Type: 
  Country: None (occurrence: None)
  Receive Date: 20091214
  Receipt Date: 20090720
  Transmission Date: 20100525
  Serious: Yes (Other)
  Sender: FDA-Public Use
  Company Number: 645272

PATIENT
  Age: 59 Year
  Sex: Female

DRUGS (2)
  1. PEGASYS [Suspect]
     Indication: HEPATITIS C
     Dates: start: 20051001
  2. RIBAVIRIN [Suspect]
     Indication: HEPATITIS C
     Dates: start: 20051001

REACTIONS (1)
  - MALAISE [None]
